FAERS Safety Report 7601717-8 (Version None)
Quarter: 2011Q3

REPORT INFORMATION
  Report Type: 
  Country: None (occurrence: None)
  Receive Date: 20110711
  Receipt Date: 20110701
  Transmission Date: 20111222
  Serious: Yes (Hospitalization)
  Sender: FDA-Public Use
  Company Number: FR-TEVA-288759ISR

PATIENT
  Sex: Male

DRUGS (3)
  1. ASPIRIN [Suspect]
     Dosage: 75 MILLIGRAM;
     Route: 048
     Dates: end: 20110501
  2. FENOFIBRATE [Suspect]
     Dosage: 200 MILLIGRAM;
     Route: 048
     Dates: start: 20080101, end: 20110501
  3. ATORVASTATIN CALCIUM [Concomitant]
     Dosage: 40 MILLIGRAM;
     Route: 048
     Dates: start: 20110405, end: 20110501

REACTIONS (4)
  - APHASIA [None]
  - HEADACHE [None]
  - GAIT DISTURBANCE [None]
  - DYSARTHRIA [None]
